FAERS Safety Report 9461079 (Version 1)
Quarter: 2013Q3

REPORT INFORMATION
  Report Type: Spontaneous
  Country: GB (occurrence: GB)
  Receive Date: 20130816
  Receipt Date: 20130816
  Transmission Date: 20140515
  Serious: Yes (Life-Threatening)
  Sender: FDA-Public Use
  Company Number: GB-009507513-1308GBR004701

PATIENT
  Age: 69 Year
  Sex: Female

DRUGS (10)
  1. DEXAMETHASONE TABLETS BP 2.0MG [Suspect]
     Indication: APPETITE DISORDER
     Dosage: 4 MG, QD
     Route: 048
     Dates: start: 20121119
  2. DEXAMETHASONE TABLETS BP 2.0MG [Suspect]
     Indication: MALAISE
  3. TARCEVA [Suspect]
     Indication: CHEMOTHERAPY
     Dosage: 150 MG, QD
     Route: 048
     Dates: start: 20121109
  4. TARCEVA [Suspect]
     Indication: LUNG NEOPLASM MALIGNANT
  5. TARCEVA [Suspect]
     Indication: METASTASES TO LUNG
  6. AMOXICILLIN (+) CLAVULANATE POTASSIUM [Concomitant]
     Dosage: 375 MG, TID
     Dates: end: 20121122
  7. FENTANYL [Concomitant]
  8. METOCLOPRAMIDE [Concomitant]
     Dosage: 10 MG, UNK
  9. RANITIDINE [Concomitant]
     Dosage: 300 MG, QD
  10. VITAMIN B (UNSPECIFIED) [Concomitant]
     Dosage: 1 DF, QD

REACTIONS (4)
  - Rectal haemorrhage [Unknown]
  - Diarrhoea [Unknown]
  - Haematochezia [Unknown]
  - Melaena [Unknown]
